FAERS Safety Report 7507023-4 (Version None)
Quarter: 2011Q2

REPORT INFORMATION
  Report Type: 
  Country: None (occurrence: None)
  Receive Date: 20110526
  Receipt Date: 20110511
  Transmission Date: 20111010
  Serious: Yes (Congenital Anomaly, Other)
  Sender: FDA-Public Use
  Company Number: US-UCBSA-8054608

PATIENT
  Age: 6 Month
  Sex: Female
  Weight: 7.1 kg

DRUGS (1)
  1. KEPPRA [Suspect]
     Route: 064

REACTIONS (2)
  - FOOT DEFORMITY [None]
  - DRUG EXPOSURE DURING PREGNANCY [None]
